FAERS Safety Report 6133414-2 (Version None)
Quarter: 2009Q1

REPORT INFORMATION
  Report Type: 
  Country: None (occurrence: None)
  Receive Date: 20090326
  Receipt Date: 20090319
  Transmission Date: 20090719
  Serious: Yes (Hospitalization, Other)
  Sender: FDA-Public Use
  Company Number: PHHY2009DE09007

PATIENT

DRUGS (3)
  1. RASILEZ HCT [Suspect]
     Indication: HYPERTENSION
     Dosage: 300/25 MG
     Route: 048
     Dates: start: 20090218
  2. METOPROLOL [Suspect]
     Dosage: 100 MG PER DAY
     Route: 048
     Dates: start: 20090218
  3. SIMVASTATIN [Concomitant]
     Dosage: 40 MG PER DAY
     Route: 048
     Dates: start: 20090218

REACTIONS (1)
  - SYNCOPE [None]
